FAERS Safety Report 8993208 (Version 2)
Quarter: 2013Q3

REPORT INFORMATION
  Report Type: Spontaneous
  Country: FR (occurrence: FR)
  Receive Date: 20130102
  Receipt Date: 20130830
  Transmission Date: 20140515
  Serious: Yes (Other)
  Sender: FDA-Public Use
  Company Number: FR-ROCHE-1173258

PATIENT
  Age: 66 Year
  Sex: Female

DRUGS (7)
  1. MABTHERA [Suspect]
     Indication: GRANULOMATOSIS WITH POLYANGIITIS
     Route: 042
     Dates: start: 20110622, end: 20120801
  2. CORTANCYL [Concomitant]
  3. PREVISCAN [Concomitant]
  4. LAMALINE [Concomitant]
  5. SPECIAFOLDINE [Concomitant]
  6. GAVISCON (FRANCE) [Concomitant]
  7. EFFEXOR [Concomitant]

REACTIONS (2)
  - Rheumatic disorder [Recovering/Resolving]
  - Joint swelling [Not Recovered/Not Resolved]
